FAERS Safety Report 8389073-1 (Version None)
Quarter: 2012Q2

REPORT INFORMATION
  Report Type: 
  Country: None (occurrence: None)
  Receive Date: 20120528
  Receipt Date: 20120518
  Transmission Date: 20120825
  Serious: Yes (Other)
  Sender: FDA-Public Use
  Company Number: PHEH2011US03258

PATIENT
  Sex: Female

DRUGS (1)
  1. GLEEVEC [Suspect]
     Indication: CHRONIC MYELOID LEUKAEMIA
     Dosage: 400 MG, QD
     Route: 048
     Dates: start: 20100128

REACTIONS (10)
  - BLOOD CHOLESTEROL INCREASED [None]
  - SWELLING [None]
  - OEDEMA PERIPHERAL [None]
  - MALAISE [None]
  - DEPRESSION [None]
  - JOINT SWELLING [None]
  - FATIGUE [None]
  - MYALGIA [None]
  - THYROID DISORDER [None]
  - ARTHRALGIA [None]
